FAERS Safety Report 6537705-2 (Version None)
Quarter: 2010Q1

REPORT INFORMATION
  Report Type: 
  Country: None (occurrence: None)
  Receive Date: 20100114
  Receipt Date: 20100106
  Transmission Date: 20100710
  Serious: Yes (Other)
  Sender: FDA-Public Use
  Company Number: US-JNJFOC-20100103783

PATIENT
  Sex: Female
  Weight: 108.86 kg

DRUGS (3)
  1. TYLENOL (CAPLET) [Suspect]
     Route: 048
  2. TYLENOL (CAPLET) [Suspect]
     Indication: ARTHRALGIA
     Dosage: 2 TO 3 TIMES A DAY
     Route: 048
  3. REMICADE [Concomitant]
     Indication: CROHN'S DISEASE
     Route: 042

REACTIONS (2)
  - CROHN'S DISEASE [None]
  - PRODUCT QUALITY ISSUE [None]
